FAERS Safety Report 9680201 (Version 1)
Quarter: 2013Q4

REPORT INFORMATION
  Report Type: Spontaneous
  Country: CA (occurrence: CA)
  Receive Date: 20131111
  Receipt Date: 20131111
  Transmission Date: 20140711
  Serious: Yes (Other)
  Sender: FDA-Public Use
  Company Number: CA-AMGEN-CANSP2013078676

PATIENT
  Age: 84 Year
  Sex: Female

DRUGS (3)
  1. PROLIA [Suspect]
     Indication: OSTEOPOROSIS POSTMENOPAUSAL
     Dosage: UNK
     Route: 065
  2. DEXILANT [Concomitant]
  3. SERAX                              /00040901/ [Concomitant]

REACTIONS (7)
  - Spinal deformity [Unknown]
  - Activities of daily living impaired [Unknown]
  - Diverticulitis [Unknown]
  - Vision blurred [Unknown]
  - Headache [Unknown]
  - Musculoskeletal stiffness [Unknown]
  - Oedema peripheral [Unknown]
